FAERS Safety Report 21080963 (Version 1)
Quarter: 2022Q3

REPORT INFORMATION
  Report Type: Spontaneous
  Country: ES (occurrence: None)
  Receive Date: 20220714
  Receipt Date: 20220714
  Transmission Date: 20221027
  Serious: Yes (Other)
  Sender: FDA-Public Use
  Company Number: 2022A245862

PATIENT
  Age: 52 Year
  Sex: Female
  Weight: 100 kg

DRUGS (2)
  1. OMEPRAZOLE [Suspect]
     Active Substance: OMEPRAZOLE
     Indication: Prophylaxis
     Route: 048
     Dates: start: 20210517
  2. NOLOTIL [Concomitant]
     Indication: Pain
     Dosage: 2.0DF EVERY 4 - 6 HOURS
     Dates: start: 20210401

REACTIONS (6)
  - Pruritus [Not Recovered/Not Resolved]
  - Myalgia [Not Recovered/Not Resolved]
  - Vision blurred [Not Recovered/Not Resolved]
  - Eye pain [Not Recovered/Not Resolved]
  - Dysphagia [Not Recovered/Not Resolved]
  - Headache [Not Recovered/Not Resolved]

NARRATIVE: CASE EVENT DATE: 20210517
